FAERS Safety Report 6509325-7 (Version None)
Quarter: 2009Q4

REPORT INFORMATION
  Report Type: 
  Country: None (occurrence: None)
  Receive Date: 20091222
  Receipt Date: 20091214
  Transmission Date: 20100525
  Serious: Yes (Other)
  Sender: FDA-Public Use
  Company Number: GB-RANBAXY-2009RR-29720

PATIENT
  Age: 57 Year
  Sex: Female

DRUGS (3)
  1. SIMVASTATIN [Suspect]
     Dosage: 20 MG, UNK
     Route: 048
  2. SIMVASTATIN [Suspect]
     Dosage: 10 MG, UNK
     Route: 048
     Dates: end: 20091203
  3. SIMVASTATIN [Suspect]
     Route: 048

REACTIONS (6)
  - ABDOMINAL PAIN [None]
  - BREAST CANCER [None]
  - CHILLS [None]
  - DIARRHOEA [None]
  - DRUG ADMINISTRATION ERROR [None]
  - RASH [None]
